FAERS Safety Report 21691140 (Version 1)
Quarter: 2022Q4

REPORT INFORMATION
  Report Type: Spontaneous
  Country: US (occurrence: US)
  Receive Date: 20221207
  Receipt Date: 20221207
  Transmission Date: 20230113
  Serious: No
  Sender: FDA-Public Use
  Company Number: US-BRISTOL-MYERS SQUIBB COMPANY-2022-148819

PATIENT
  Age: 86 Year
  Sex: Female

DRUGS (1)
  1. REVLIMID [Suspect]
     Active Substance: LENALIDOMIDE
     Indication: Plasma cell myeloma
     Dosage: TAKE 1 CAPSULE ?WHOLE BY MOUTH ?WITH WATER AT ?SAME TIME DAILY ?ON DAYS 1-21 OF ?EACH 28 DAY ?CYCLE
     Route: 048

REACTIONS (1)
  - Inappropriate schedule of product administration [Unknown]
